FAERS Safety Report 5152581-0 (Version None)
Quarter: 2006Q4

REPORT INFORMATION
  Report Type: 
  Country: None (occurrence: None)
  Receive Date: 20061109
  Receipt Date: 19970303
  Transmission Date: 20070319
  Serious: Yes (Hospitalization)
  Sender: FDA-Public Use
  Company Number: 2006119651

PATIENT
  Age: 63 Year
  Sex: Male

DRUGS (7)
  1. IRINOTECAN HCL [Suspect]
     Indication: PANCREATIC CARCINOMA
     Dosage: 460 MG, INTRAVENOUS
     Route: 042
     Dates: start: 19970227, end: 19970227
  2. AMLODIPINE [Concomitant]
  3. ENALAPRIL MALEATE AND HYDROCHLOROTHIAZIDE [Concomitant]
  4. ACETAMINOPHEN [Concomitant]
  5. MOSCONTIN (MORPHINE SULFATE) [Concomitant]
  6. OXALIPLATIN [Concomitant]
  7. VISCERALGINE (TIEMONIUM MESILATE) [Concomitant]

REACTIONS (3)
  - BILIARY DILATATION [None]
  - CHOLESTASIS [None]
  - NEOPLASM PROGRESSION [None]
